FAERS Safety Report 13627114 (Version 1)
Quarter: 2017Q2

REPORT INFORMATION
  Report Type: Spontaneous
  Country: DE (occurrence: DE)
  Receive Date: 20170607
  Receipt Date: 20170607
  Transmission Date: 20170830
  Serious: Yes (Other)
  Sender: FDA-Public Use
  Company Number: DE-MYLANLABS-2017M1033321

PATIENT

DRUGS (4)
  1. PANTOPRAZOL [Concomitant]
     Active Substance: PANTOPRAZOLE SODIUM
     Dosage: DAILY DOSE: 40 MG MILLGRAM(S) EVERY DAYS
     Route: 048
  2. LINEZOLID. [Suspect]
     Active Substance: LINEZOLID
     Indication: BRAIN ABSCESS
     Dosage: DAILY DOSE: 1200 MG MILLGRAM(S) EVERY DAYS
     Route: 048
     Dates: start: 20170403
  3. METRONIDAZOL [Concomitant]
     Active Substance: METRONIDAZOLE
     Dosage: DAILY DOSE: 1200 MG MILLGRAM(S) EVERY DAYS
     Route: 048
  4. CEFUROXIM [Concomitant]
     Active Substance: CEFUROXIME
     Dosage: DAILY DOSE: 1000 MG MILLGRAM(S) EVERY DAYS
     Route: 048

REACTIONS (4)
  - Anaemia [Unknown]
  - Diabetes mellitus [Unknown]
  - Dysgeusia [Unknown]
  - Tongue discolouration [Unknown]
